FAERS Safety Report 26055307 (Version 1)
Quarter: 2025Q4

REPORT INFORMATION
  Report Type: Spontaneous
  Country: RU (occurrence: RU)
  Receive Date: 20251117
  Receipt Date: 20251117
  Transmission Date: 20260118
  Serious: Yes (Death, Hospitalization, Other)
  Sender: EMD SERONO INC
  Company Number: RU-Merck Healthcare KGaA-2025058470

PATIENT
  Age: 73 Year
  Sex: Male

DRUGS (1)
  1. BAVENCIO [Suspect]
     Active Substance: AVELUMAB
     Indication: Transitional cell carcinoma metastatic

REACTIONS (5)
  - Hepatorenal failure [Unknown]
  - Brain oedema [Unknown]
  - Pulmonary oedema [Unknown]
  - Dermatitis exfoliative generalised [Unknown]
  - Immune-mediated hepatitis [Fatal]

NARRATIVE: CASE EVENT DATE: 20231229
